FAERS Safety Report 9670702 (Version 2)
Quarter: 2013Q4

REPORT INFORMATION
  Report Type: Spontaneous
  Country: DE (occurrence: DE)
  Receive Date: 20131106
  Receipt Date: 20131106
  Transmission Date: 20140711
  Serious: Yes (Other)
  Sender: FDA-Public Use
  Company Number: DE-AMGEN-DEUSP2013064866

PATIENT
  Age: 58 Year
  Sex: Female

DRUGS (5)
  1. NEULASTA [Suspect]
     Indication: PRODUCT USED FOR UNKNOWN INDICATION
     Dosage: UNK UNK, AFTER CHEMO
     Route: 065
     Dates: start: 20130626
  2. FLUOROURACIL [Suspect]
     Indication: BREAST CANCER
     Dosage: UNK UNK, Q3WK
     Route: 042
     Dates: start: 20130625, end: 20130806
  3. EPIRUBICIN [Suspect]
     Indication: BREAST CANCER
     Dosage: UNK UNK, Q3WK
     Route: 042
     Dates: start: 20130625, end: 20130806
  4. CYCLOPHOSPHAMIDE [Suspect]
     Indication: BREAST CANCER
     Dosage: UNK UNK, 3X DOC Q3WK
     Route: 042
     Dates: start: 20130625, end: 20130806
  5. DOCETAXEL [Suspect]
     Indication: BREAST CANCER
     Dosage: UNK UNK, Q3WK
     Route: 042
     Dates: start: 20130625, end: 20130806

REACTIONS (4)
  - Oedema peripheral [Not Recovered/Not Resolved]
  - Swelling face [Recovering/Resolving]
  - Cough [Recovering/Resolving]
  - White blood cell count increased [Unknown]
